FAERS Safety Report 5056964-9 (Version None)
Quarter: 2006Q2

REPORT INFORMATION
  Report Type: 
  Country: None (occurrence: None)
  Receive Date: 20060622
  Receipt Date: 20050902
  Transmission Date: 20061013
  Serious: Yes (Other)
  Sender: FDA-Public Use
  Company Number: US-JNJFOC-20050901771

PATIENT
  Age: 55 Year
  Sex: Female
  Weight: 42.6381 kg

DRUGS (6)
  1. DURAGESIC-100 [Suspect]
     Indication: PAIN
     Dosage: SEE IMAGE
     Route: 062
     Dates: start: 20040101, end: 20050301
  2. DURAGESIC-100 [Suspect]
     Indication: PAIN
     Dosage: SEE IMAGE
     Route: 062
     Dates: start: 20050301, end: 20050801
  3. DURAGESIC-100 [Suspect]
     Indication: PAIN
     Dosage: SEE IMAGE
     Route: 062
     Dates: start: 20050801
  4. ROXICET (OXYCOCET) TABLETS [Concomitant]
  5. DIAZEPAM (DIAZEPAM) TABLETS [Concomitant]
  6. ELAVIL (AMITRIPTYLINE HYDROCHLORIDE) TABLETS [Concomitant]

REACTIONS (1)
  - WEIGHT DECREASED [None]
